FAERS Safety Report 24800757 (Version 1)
Quarter: 2025Q1

REPORT INFORMATION
  Report Type: Spontaneous
  Country: US (occurrence: US)
  Receive Date: 20250102
  Receipt Date: 20250102
  Transmission Date: 20250409
  Serious: No
  Sender: MYLAN
  Company Number: US-MYLANLABS-2024M1114420

PATIENT
  Sex: Male

DRUGS (9)
  1. PREGABALIN [Suspect]
     Active Substance: PREGABALIN
     Indication: Mobility decreased
     Route: 048
     Dates: start: 2023
  2. PREGABALIN [Suspect]
     Active Substance: PREGABALIN
     Indication: Pain
  3. PREGABALIN [Suspect]
     Active Substance: PREGABALIN
     Indication: Muscle spasms
  4. PREGABALIN [Suspect]
     Active Substance: PREGABALIN
     Indication: Muscle contractions involuntary
  5. ATORVASTATIN [Concomitant]
     Active Substance: ATORVASTATIN
     Route: 065
  6. DULOXETINE [Concomitant]
     Active Substance: DULOXETINE
     Route: 065
  7. BACLOFEN [Concomitant]
     Active Substance: BACLOFEN
     Route: 065
  8. CYCLOBENZAPRINE [Concomitant]
     Active Substance: CYCLOBENZAPRINE
     Route: 065
  9. TRAMADOL [Concomitant]
     Active Substance: TRAMADOL
     Route: 065

REACTIONS (1)
  - Drug ineffective for unapproved indication [Unknown]
